FAERS Safety Report 4367808-2 (Version None)
Quarter: 2004Q2

REPORT INFORMATION
  Report Type: 
  Country: None (occurrence: None)
  Receive Date: 20040526
  Receipt Date: 20040227
  Transmission Date: 20050107
  Serious: Yes (Hospitalization, Other)
  Sender: FDA-Public Use
  Company Number: USA040360465

PATIENT
  Age: 61 Year
  Sex: Female

DRUGS (1)
  1. ZYPREXA [Suspect]
     Indication: NERVOUSNESS
     Dosage: 10 MG/2 DAY
     Dates: start: 20010101

REACTIONS (3)
  - INSOMNIA [None]
  - NERVOUSNESS [None]
  - RASH PRURITIC [None]
